FAERS Safety Report 26096591 (Version 1)
Quarter: 2025Q4

REPORT INFORMATION
  Report Type: Spontaneous
  Country: US (occurrence: US)
  Receive Date: 20251127
  Receipt Date: 20251127
  Transmission Date: 20260118
  Serious: Yes (Other)
  Sender: ABBVIE
  Company Number: US-ABBVIE-6564172

PATIENT
  Sex: Female

DRUGS (3)
  1. FML [Suspect]
     Active Substance: FLUOROMETHOLONE
     Indication: Product used for unknown indication
     Route: 065
  2. LATISSE [Suspect]
     Active Substance: BIMATOPROST
     Indication: Growth of eyelashes
     Dosage: PATIENT ROA- TOPICAL
     Route: 065
  3. LATISSE [Suspect]
     Active Substance: BIMATOPROST
     Dosage: PATIENT ROA- TOPICAL
     Route: 065

REACTIONS (4)
  - Cataract [Unknown]
  - Foreign body sensation in eyes [Unknown]
  - Corneal abrasion [Unknown]
  - Ocular hyperaemia [Unknown]
